FAERS Safety Report 15929413 (Version 2)
Quarter: 2019Q1

REPORT INFORMATION
  Report Type: Spontaneous
  Country: US (occurrence: US)
  Receive Date: 20190206
  Receipt Date: 20190326
  Transmission Date: 20190417
  Serious: No
  Sender: FDA-Public Use
  Company Number: US-ACTELION-A-NJ2019-185677

PATIENT
  Sex: Female
  Weight: 85.71 kg

DRUGS (4)
  1. VELETRI [Suspect]
     Active Substance: EPOPROSTENOL
     Indication: PULMONARY ARTERIAL HYPERTENSION
     Dosage: 29.9 NG/KG, PER MIN
     Route: 042
  2. VELETRI [Suspect]
     Active Substance: EPOPROSTENOL
     Dosage: 30.6 UNK
     Route: 042
  3. ADCIRCA [Concomitant]
     Active Substance: TADALAFIL
  4. WARFARIN [Concomitant]
     Active Substance: WARFARIN

REACTIONS (2)
  - Gastrooesophageal reflux disease [Unknown]
  - Catheter site infection [Unknown]
